FAERS Safety Report 9103579 (Version 1)
Quarter: 2013Q1

REPORT INFORMATION
  Report Type: Spontaneous
  Country: ES (occurrence: ES)
  Receive Date: 20130219
  Receipt Date: 20130219
  Transmission Date: 20140127
  Serious: Yes (Hospitalization)
  Sender: FDA-Public Use
  Company Number: ES-VIIV HEALTHCARE LIMITED-B0867624A

PATIENT
  Age: 43 Year
  Sex: Female

DRUGS (5)
  1. KIVEXA [Suspect]
     Indication: HIV INFECTION CDC GROUP IV SUBGROUP E
     Dosage: 1TAB PER DAY
     Route: 048
     Dates: start: 201206, end: 20130103
  2. PEGASYS [Suspect]
     Indication: HEPATITIS C
     Dosage: 180MCG WEEKLY
     Route: 058
     Dates: start: 20100903
  3. RIBAVIRIN [Suspect]
     Indication: HEPATITIS C
     Route: 048
     Dates: start: 20100903
  4. TELAPREVIR [Concomitant]
     Indication: HEPATITIS C
     Dosage: 375MG PER DAY
     Route: 048
     Dates: start: 20120601, end: 20120903
  5. EMTRICITABINE [Concomitant]
     Indication: HIV INFECTION CDC GROUP IV SUBGROUP E
     Route: 048
     Dates: start: 201206

REACTIONS (4)
  - Pleural effusion [Recovering/Resolving]
  - Dyspnoea [Recovering/Resolving]
  - Pyrexia [Recovering/Resolving]
  - Pleuritic pain [Recovering/Resolving]
